FAERS Safety Report 18818117 (Version 2)
Quarter: 2021Q1

REPORT INFORMATION
  Report Type: Spontaneous
  Country: US (occurrence: US)
  Receive Date: 20210202
  Receipt Date: 20210204
  Transmission Date: 20210419
  Serious: No
  Sender: FDA-Public Use
  Company Number: US-JNJFOC-20210139263

PATIENT
  Age: 16 Year
  Sex: Male

DRUGS (1)
  1. STELARA [Suspect]
     Active Substance: USTEKINUMAB
     Indication: COLITIS ULCERATIVE
     Route: 042
     Dates: start: 20210104

REACTIONS (3)
  - Off label use [Unknown]
  - Eye swelling [Unknown]
  - Product use issue [Unknown]

NARRATIVE: CASE EVENT DATE: 202101
